FAERS Safety Report 5664165-6 (Version None)
Quarter: 2008Q1

REPORT INFORMATION
  Report Type: 
  Country: None (occurrence: None)
  Receive Date: 20080314
  Receipt Date: 20080314
  Transmission Date: 20080703
  Serious: Yes (Life-Threatening, Hospitalization, Other)
  Sender: FDA-Public Use
  Company Number: None

PATIENT
  Age: 33 Year
  Sex: Female
  Weight: 84.369 kg

DRUGS (1)
  1. HEPARIN [Suspect]
     Indication: ANTIPHOSPHOLIPID SYNDROME
     Dosage: 20,000 BID SQ
     Route: 058
     Dates: start: 20070529, end: 20070529

REACTIONS (6)
  - DIARRHOEA [None]
  - DIZZINESS [None]
  - DRUG EXPOSURE DURING PREGNANCY [None]
  - DYSPNOEA [None]
  - INDUCED LABOUR [None]
  - VOMITING [None]
